FAERS Safety Report 8556333-0 (Version None)
Quarter: 2012Q3

REPORT INFORMATION
  Report Type: 
  Country: None (occurrence: None)
  Receive Date: 20120801
  Receipt Date: 20120727
  Transmission Date: 20120928
  Serious: No
  Sender: FDA-Public Use
  Company Number: US-PFIZER INC-2012158601

PATIENT
  Age: 12 Year
  Sex: Male
  Weight: 34 kg

DRUGS (4)
  1. CYPROHEPTADINE [Concomitant]
     Indication: HEADACHE
     Dosage: 4 MG, AS NEEDED
  2. GENOTROPIN [Suspect]
     Indication: GROWTH HORMONE DEFICIENCY
     Dosage: 1.6 MG, DAILY
     Route: 058
     Dates: start: 20120201, end: 20120101
  3. MELATONIN [Concomitant]
     Indication: SLEEP DISORDER
     Dosage: 5 MG, DAILY
  4. ADDERALL XR 10 [Concomitant]
     Indication: ATTENTION DEFICIT/HYPERACTIVITY DISORDER
     Dosage: 30 MG, DAILY

REACTIONS (2)
  - INJECTION SITE PAIN [None]
  - INJECTION SITE HAEMORRHAGE [None]
